FAERS Safety Report 12008876 (Version 1)
Quarter: 2016Q1

REPORT INFORMATION
  Report Type: Spontaneous
  Country: US (occurrence: None)
  Receive Date: 20160203
  Receipt Date: 20160203
  Transmission Date: 20160526
  Serious: Yes (Life-Threatening, Hospitalization)
  Sender: FDA-Public Use
  Company Number: None

PATIENT
  Age: 57 Year
  Sex: Female
  Weight: 61.69 kg

DRUGS (6)
  1. LISINOPRIL 10 MG [Suspect]
     Active Substance: LISINOPRIL
     Indication: BLOOD PRESSURE INCREASED
     Dosage: 1 PILL
     Route: 048
     Dates: start: 20160115, end: 20160122
  2. EPINEPHRINE (EPIPEN [Concomitant]
  3. FLONASE [Concomitant]
     Active Substance: FLUTICASONE PROPIONATE
  4. D3 BONE HEALTH SUPPLEMENT [Concomitant]
  5. AMLODIPINE [Concomitant]
     Active Substance: AMLODIPINE BESYLATE
  6. NICOTINE. [Concomitant]
     Active Substance: NICOTINE

REACTIONS (5)
  - Swelling face [None]
  - Tooth abscess [None]
  - Lip swelling [None]
  - Angioedema [None]
  - Mouth swelling [None]

NARRATIVE: CASE EVENT DATE: 20160122
